FAERS Safety Report 6313538-7 (Version None)
Quarter: 2009Q3

REPORT INFORMATION
  Report Type: 
  Country: None (occurrence: None)
  Receive Date: 20090814
  Receipt Date: 20090814
  Transmission Date: 20100115
  Serious: Yes (Hospitalization)
  Sender: FDA-Public Use
  Company Number: None

PATIENT
  Sex: Female
  Weight: 47.7 kg

DRUGS (3)
  1. FLUOROURACIL [Suspect]
     Dosage: 4025 MG
     Dates: end: 20050630
  2. LEUCOVORIN CALCIUM [Suspect]
     Dosage: 575 MG
     Dates: end: 20050628
  3. ELOXATIN [Suspect]
     Dosage: 120 MG
     Dates: end: 20050628

REACTIONS (6)
  - ABDOMINAL SEPSIS [None]
  - ASCITES [None]
  - HYPOTENSION [None]
  - INTESTINAL DILATATION [None]
  - INTESTINAL ISCHAEMIA [None]
  - SEPSIS [None]
